FAERS Safety Report 14526310 (Version 2)
Quarter: 2018Q1

REPORT INFORMATION
  Report Type: Report from Study
  Country: US (occurrence: US)
  Receive Date: 20180213
  Receipt Date: 20180228
  Transmission Date: 20180509
  Serious: Yes (Other)
  Sender: FDA-Public Use
  Company Number: US-HLSUS-2018-US-000033

PATIENT
  Age: 60 Year
  Sex: Female
  Weight: 63.05 kg

DRUGS (1)
  1. CLOZARIL [Suspect]
     Active Substance: CLOZAPINE
     Dosage: 200MG (2 TABLETS) IN MORNING AND 500MG (5 TABLETS) AT BEDTIME
     Route: 048
     Dates: end: 20180207

REACTIONS (2)
  - Malignant glioma [Unknown]
  - Neutropenia [Unknown]

NARRATIVE: CASE EVENT DATE: 20180202
